FAERS Safety Report 11342318 (Version 1)
Quarter: 2015Q3

REPORT INFORMATION
  Report Type: Spontaneous
  Country: GB (occurrence: GB)
  Receive Date: 20150805
  Receipt Date: 20150805
  Transmission Date: 20151125
  Serious: Yes (Other)
  Sender: FDA-Public Use
  Company Number: GB-009507513-1508GBR000207

PATIENT
  Age: 92 Year
  Sex: Female
  Weight: 58 kg

DRUGS (13)
  1. BIMATOPROST. [Concomitant]
     Active Substance: BIMATOPROST
     Dosage: LEFT EYE, AT NIGHT.
     Route: 047
     Dates: start: 20150402
  2. LACTULOSE. [Concomitant]
     Active Substance: LACTULOSE
     Dosage: AS NEEDED
     Dates: start: 20141219
  3. CALCEOS [Concomitant]
     Active Substance: CALCIUM CARBONATE\CHOLECALCIFEROL
     Dates: start: 20141219
  4. ACETAMINOPHEN AND CODEINE [Concomitant]
     Active Substance: ACETAMINOPHEN\CODEINE PHOSPHATE
     Indication: ANALGESIC THERAPY
     Dosage: UP TO 4 TIMES/DAY
     Dates: start: 20150402
  5. QUININE [Concomitant]
     Active Substance: QUININE
     Dosage: AS DIRECTED.
     Dates: start: 20141029
  6. DORZOLAMIDE HYDROCHLORIDE. [Suspect]
     Active Substance: DORZOLAMIDE HYDROCHLORIDE
     Dates: start: 20141029
  7. AZOPT [Concomitant]
     Active Substance: BRINZOLAMIDE
     Dosage: TO BOTH EYES
     Route: 047
     Dates: start: 20150722
  8. CITALOPRAM [Concomitant]
     Active Substance: CITALOPRAM HYDROBROMIDE
     Dosage: MORNING
     Dates: start: 20141029
  9. DOUBLEBASE [Concomitant]
     Active Substance: ISOPROPYL MYRISTATE\PARAFFIN
     Dates: start: 20150402
  10. OMEPRAZOLE. [Concomitant]
     Active Substance: OMEPRAZOLE
     Dosage: 1 DF, QD
     Dates: start: 20150402
  11. LETROZOLE. [Concomitant]
     Active Substance: LETROZOLE
     Dosage: 1 DF, QD
     Dates: start: 20150402
  12. BRIMONIDINE TARTRATE. [Concomitant]
     Active Substance: BRIMONIDINE TARTRATE
     Dosage: TO BOTH EYES
     Route: 047
     Dates: start: 20150722
  13. FOLIC ACID. [Concomitant]
     Active Substance: FOLIC ACID
     Dosage: 1 DF, QD
     Dates: start: 20150402

REACTIONS (2)
  - Wheezing [Recovered/Resolved]
  - Dyspnoea [Recovered/Resolved]

NARRATIVE: CASE EVENT DATE: 20150723
